FAERS Safety Report 8148739-9 (Version None)
Quarter: 2012Q1

REPORT INFORMATION
  Report Type: 
  Country: None (occurrence: None)
  Receive Date: 20120218
  Receipt Date: 20110705
  Transmission Date: 20120608
  Serious: No
  Sender: FDA-Public Use
  Company Number: US-ALLERGAN-1109085US

PATIENT
  Age: 34 Year
  Sex: Female

DRUGS (2)
  1. ELAVIL [Concomitant]
  2. BOTULINUM TOXIN TYPE A [Suspect]
     Indication: MIGRAINE
     Dosage: 155 UNITS, SINGLE
     Route: 030
     Dates: start: 20110628, end: 20110628

REACTIONS (2)
  - HEAD DISCOMFORT [None]
  - NECK PAIN [None]
